FAERS Safety Report 10159969 (Version 4)
Quarter: 2015Q3

REPORT INFORMATION
  Report Type: Spontaneous
  Country: US (occurrence: US)
  Receive Date: 20140508
  Receipt Date: 20150720
  Transmission Date: 20151125
  Serious: Yes (Death, Hospitalization, Other)
  Sender: FDA-Public Use
  Company Number: US-009507513-1405USA002878

PATIENT
  Sex: Female
  Weight: 72.56 kg

DRUGS (2)
  1. JANUVIA [Suspect]
     Active Substance: SITAGLIPTIN PHOSPHATE
     Indication: TYPE 2 DIABETES MELLITUS
     Dosage: 50 MG, QD
     Route: 048
     Dates: start: 20110503, end: 20110708
  2. JANUVIA [Suspect]
     Active Substance: SITAGLIPTIN PHOSPHATE
     Dosage: 25 MG, QD
     Route: 048
     Dates: start: 20120314

REACTIONS (20)
  - Hyperthyroidism [Unknown]
  - Polypectomy [Unknown]
  - Adverse event [Unknown]
  - Gastrointestinal haemorrhage [Unknown]
  - Atrophic vulvovaginitis [Unknown]
  - Haemorrhagic anaemia [Unknown]
  - Gastric polyps [Unknown]
  - Arteriovenous graft site infection [Unknown]
  - Gastrointestinal haemorrhage [Unknown]
  - Vaginal haemorrhage [Unknown]
  - Cognitive disorder [Unknown]
  - Incisional drainage [Unknown]
  - Abnormal behaviour [Unknown]
  - Infarction [Unknown]
  - Peripheral venous disease [Not Recovered/Not Resolved]
  - Dialysis device insertion [Unknown]
  - Mucosal atrophy [Unknown]
  - Pancreatic carcinoma [Fatal]
  - Vascular operation [Unknown]
  - Stasis dermatitis [Not Recovered/Not Resolved]

NARRATIVE: CASE EVENT DATE: 201108
